FAERS Safety Report 7396866-6 (Version None)
Quarter: 2011Q2

REPORT INFORMATION
  Report Type: 
  Country: None (occurrence: None)
  Receive Date: 20110406
  Receipt Date: 20110325
  Transmission Date: 20111010
  Serious: Yes (Other)
  Sender: FDA-Public Use
  Company Number: US-JNJFOC-20110312429

PATIENT
  Sex: Female
  Weight: 53.07 kg

DRUGS (5)
  1. DURAGESIC [Suspect]
     Route: 062
  2. DURAGESIC [Suspect]
     Indication: PAIN
     Route: 062
  3. FENTANYL CITRATE [Suspect]
     Indication: PAIN
     Route: 062
  4. FENTANYL-100 [Suspect]
     Indication: PAIN
     Route: 062
  5. DURAGESIC [Suspect]
     Route: 062

REACTIONS (10)
  - PAIN IN JAW [None]
  - HYPOKINESIA [None]
  - BEDRIDDEN [None]
  - CYSTITIS [None]
  - EATING DISORDER [None]
  - ABNORMAL LOSS OF WEIGHT [None]
  - SENSORY DISTURBANCE [None]
  - TRISMUS [None]
  - PAIN [None]
  - DRUG INEFFECTIVE [None]
